FAERS Safety Report 5736115-5 (Version None)
Quarter: 2008Q2

REPORT INFORMATION
  Report Type: 
  Country: None (occurrence: None)
  Receive Date: 20080513
  Receipt Date: 20080429
  Transmission Date: 20081010
  Serious: Yes (Hospitalization)
  Sender: FDA-Public Use
  Company Number: FR-GENENTECH-255058

PATIENT
  Sex: Male
  Weight: 80 kg

DRUGS (5)
  1. AVASTIN [Suspect]
     Indication: COLORECTAL CANCER
     Dosage: 375 MG, UNK
     Route: 042
     Dates: start: 20070523, end: 20070704
  2. AVASTIN [Suspect]
     Dosage: 375 MG, UNKNOWN
     Route: 042
     Dates: start: 20071226
  3. FLUOROURACIL [Suspect]
     Indication: COLORECTAL CANCER
     Dosage: 5400 MG, UNK
     Route: 042
     Dates: start: 20060523
  4. IRINOTECAN HCL [Suspect]
     Indication: COLORECTAL CANCER
     Dosage: 260 MG, UNK
     Route: 042
     Dates: start: 20060523
  5. FOLINIC ACID [Concomitant]
     Indication: COLORECTAL CANCER

REACTIONS (3)
  - CHOLESTASIS [None]
  - JAUNDICE [None]
  - TRANSAMINASES INCREASED [None]
